FAERS Safety Report 7730505-7 (Version None)
Quarter: 2011Q3

REPORT INFORMATION
  Report Type: 
  Country: None (occurrence: None)
  Receive Date: 20110906
  Receipt Date: 20110825
  Transmission Date: 20111222
  Serious: Yes (Hospitalization)
  Sender: FDA-Public Use
  Company Number: PHHO2011BR14244

PATIENT
  Sex: Male

DRUGS (3)
  1. MYCOPHENOLATE MOFETIL [Suspect]
     Indication: RENAL TRANSPLANT
     Dosage: 1440 MG, QD
     Dates: start: 20061104
  2. NEORAL [Suspect]
     Indication: RENAL TRANSPLANT
     Dosage: 225 MG, QD
     Route: 048
     Dates: start: 20101230
  3. PREDNISONE [Suspect]
     Indication: RENAL TRANSPLANT
     Dosage: 5 MG, QD
     Dates: start: 20101109

REACTIONS (2)
  - PERIODONTITIS [None]
  - GINGIVITIS [None]
